FAERS Safety Report 14938930 (Version 1)
Quarter: 2018Q2

REPORT INFORMATION
  Report Type: Spontaneous
  Country: US (occurrence: US)
  Receive Date: 20180507
  Receipt Date: 20180507
  Transmission Date: 20180711
  Serious: No
  Sender: FDA-Public Use
  Company Number: None

PATIENT
  Age: 66 Year
  Sex: Female
  Weight: 127.01 kg

DRUGS (7)
  1. IMBRUVICA [Suspect]
     Active Substance: IBRUTINIB
     Indication: WALDENSTROM^S MACROGLOBULINAEMIA
     Route: 048
     Dates: start: 2015, end: 20180429
  2. LEVOTHYROXINE. [Concomitant]
     Active Substance: LEVOTHYROXINE
  3. ALPHA LIPOIC ACID [Concomitant]
     Active Substance: .ALPHA.-LIPOIC ACID
  4. IMBRUVICA [Concomitant]
     Active Substance: IBRUTINIB
  5. KAVA KAVA [Concomitant]
     Active Substance: PIPER METHYSTICUM ROOT
  6. B VITAMINS [Concomitant]
     Active Substance: CYANOCOBALAMIN\DEXPANTHENOL\NIACINAMIDE\PYRIDOXINE HYDROCHLORIDE\RIBOFLAVIN 5^-PHOSPHATE SODIUM\THIAMINE HYDROCHLORIDE\VITAMIN B COMPLEX
  7. IBUPROFEN. [Concomitant]
     Active Substance: IBUPROFEN

REACTIONS (13)
  - Nasal pruritus [None]
  - Fatigue [None]
  - Eye pruritus [None]
  - Panic attack [None]
  - Tinnitus [None]
  - Urinary tract infection [None]
  - Feeling abnormal [None]
  - Pruritus [None]
  - Vulvovaginal pruritus [None]
  - Insomnia [None]
  - Ear pruritus [None]
  - Dehydration [None]
  - Depressed level of consciousness [None]

NARRATIVE: CASE EVENT DATE: 20180415
